FAERS Safety Report 4350664-6 (Version None)
Quarter: 2004Q2

REPORT INFORMATION
  Report Type: 
  Country: None (occurrence: None)
  Receive Date: 20040428
  Receipt Date: 20040419
  Transmission Date: 20050107
  Serious: Yes (Hospitalization)
  Sender: FDA-Public Use
  Company Number: FRWYE709719APR04

PATIENT

DRUGS (1)
  1. RAPAMUNE [Suspect]
     Dosage: ORAL
     Route: 048
     Dates: start: 20030527

REACTIONS (1)
  - WOUND EVISCERATION [None]
